FAERS Safety Report 24659903 (Version 1)
Quarter: 2024Q4

REPORT INFORMATION
  Report Type: Spontaneous
  Country: CA (occurrence: CA)
  Receive Date: 20241125
  Receipt Date: 20241125
  Transmission Date: 20250114
  Serious: Yes (Hospitalization, Other)
  Sender: DAIICHI
  Company Number: CA-ASTRAZENECA-202411CAN006495CA

PATIENT
  Sex: Female

DRUGS (1)
  1. TRASTUZUMAB DERUXTECAN [Suspect]
     Active Substance: TRASTUZUMAB DERUXTECAN
     Indication: HER2 positive breast cancer
     Dosage: 535.0 MILLIGRAM, Q3W
     Route: 042

REACTIONS (3)
  - Bacterial infection [Unknown]
  - Pneumonia [Unknown]
  - Ulcer haemorrhage [Unknown]
